FAERS Safety Report 24696351 (Version 1)
Quarter: 2024Q4

REPORT INFORMATION
  Report Type: Spontaneous
  Country: US (occurrence: US)
  Receive Date: 20241204
  Receipt Date: 20241204
  Transmission Date: 20250114
  Serious: Yes (Life-Threatening, Other)
  Sender: MALLINCKRODT
  Company Number: US-MALLINCKRODT-MNK202407261

PATIENT
  Age: 6 Month
  Sex: Female
  Weight: 6 kg

DRUGS (2)
  1. NITRIC OXIDE [Suspect]
     Active Substance: NITRIC OXIDE
     Indication: Hypoxia
     Dosage: 20 PPM (PARTS PER MILLION)
     Route: 055
  2. METHYLPREDNISOLONE [Concomitant]
     Active Substance: METHYLPREDNISOLONE
     Dosage: UNKNOWN

REACTIONS (4)
  - Respiratory failure [Recovering/Resolving]
  - Pulmonary oedema [Recovering/Resolving]
  - Rhinovirus infection [Unknown]
  - Parainfluenzae virus infection [Unknown]
